FAERS Safety Report 4346570-3 (Version None)
Quarter: 2004Q2

REPORT INFORMATION
  Report Type: 
  Country: None (occurrence: None)
  Receive Date: 20040426
  Receipt Date: 20040227
  Transmission Date: 20050107
  Serious: No
  Sender: FDA-Public Use
  Company Number: US-BRISTOL-MYERS SQUIBB COMPANY-12520367

PATIENT
  Age: 52 Year
  Sex: Female
  Weight: 76 kg

DRUGS (1)
  1. CARBOPLATIN [Suspect]
     Indication: OVARIAN CANCER
     Dosage: ADDITIONAL LOT: #3L68030, EXPIRATION DATE: 30-APR-2005
     Route: 042

REACTIONS (3)
  - PRURITUS [None]
  - RASH ERYTHEMATOUS [None]
  - THROAT IRRITATION [None]
